FAERS Safety Report 17215855 (Version 3)
Quarter: 2020Q1

REPORT INFORMATION
  Report Type: Report from Study
  Country: US (occurrence: US)
  Receive Date: 20191230
  Receipt Date: 20200313
  Transmission Date: 20200409
  Serious: Yes (Hospitalization)
  Sender: FDA-Public Use
  Company Number: NVSC2019US074330

PATIENT
  Age: 53 Year
  Weight: 77.5 kg

DRUGS (11)
  1. FENOFIBRATE. [Concomitant]
     Active Substance: FENOFIBRATE
     Indication: HYPERTRIGLYCERIDAEMIA
     Dosage: UNK
     Route: 065
     Dates: start: 20151029
  2. LISINOPRIL. [Concomitant]
     Active Substance: LISINOPRIL
     Indication: HYPERTENSION
     Dosage: UNK
     Route: 065
     Dates: start: 20151029
  3. HYDROCODONE-ACETAMINOPHEN (NORCO) [Concomitant]
     Indication: PAIN
     Dosage: UNK
     Route: 065
     Dates: start: 20191023
  4. LORATADINE (CLARITIN) [Concomitant]
     Indication: PAIN
     Dosage: UNK
     Route: 065
     Dates: start: 20151029
  5. ACYCLOVIR (ZOVIRAX) [Concomitant]
     Indication: PRODUCT USED FOR UNKNOWN INDICATION
     Dosage: ONCE/SINGLE
     Route: 065
     Dates: start: 20180220
  6. DIFLUCAN [Concomitant]
     Active Substance: FLUCONAZOLE
     Indication: PROPHYLAXIS
     Dosage: UNK
     Route: 065
     Dates: start: 20191103
  7. ALPRAZOLAM (NIRAVAM) [Concomitant]
     Indication: ANXIETY
     Dosage: UNK
     Route: 065
     Dates: start: 20151029
  8. MONTELUKAST [Concomitant]
     Active Substance: MONTELUKAST SODIUM
     Indication: INFLAMMATION
     Dosage: UNK
     Route: 065
     Dates: start: 20190726
  9. TRIAMCINOLONE ACETONIDE (ORALONE) [Concomitant]
     Indication: TOOTH INFECTION
     Dosage: UNK
     Route: 065
     Dates: start: 20191120
  10. KYMRIAH [Suspect]
     Active Substance: TISAGENLECLEUCEL
     Indication: LYMPHOMA
     Dosage: ONCE/SINGLE
     Route: 042
     Dates: start: 20190723
  11. CLINDAMYCIN. [Concomitant]
     Active Substance: CLINDAMYCIN
     Indication: TOOTH INFECTION
     Route: 065
     Dates: start: 20191115, end: 20191224

REACTIONS (1)
  - Stomatitis [Recovered/Resolved]

NARRATIVE: CASE EVENT DATE: 20191216
